FAERS Safety Report 4509999-6 (Version None)
Quarter: 2004Q4

REPORT INFORMATION
  Report Type: 
  Country: None (occurrence: None)
  Receive Date: 20041124
  Receipt Date: 20041115
  Transmission Date: 20050328
  Serious: Yes (Hospitalization)
  Sender: FDA-Public Use
  Company Number: FR-ABBOTT-04P-056-0280578-00

PATIENT
  Age: 87 Year
  Sex: Female

DRUGS (4)
  1. LIPANTHYL [Suspect]
     Indication: DRUG USE FOR UNKNOWN INDICATION
     Route: 048
     Dates: start: 20030101
  2. AMIODARONE HYDROCHLORIDE [Interacting]
     Indication: DRUG USE FOR UNKNOWN INDICATION
     Dates: start: 20030101
  3. FLUINDIONE [Interacting]
     Indication: DRUG USE FOR UNKNOWN INDICATION
     Dates: start: 20040922, end: 20040929
  4. HEPARIN CALCIUM [Suspect]
     Indication: DRUG USE FOR UNKNOWN INDICATION
     Route: 050
     Dates: start: 20040929

REACTIONS (6)
  - DRUG INTERACTION [None]
  - ECZEMA [None]
  - GASTROINTESTINAL HAEMORRHAGE [None]
  - INJECTION SITE PRURITUS [None]
  - INJECTION SITE RASH [None]
  - INTERNATIONAL NORMALISED RATIO INCREASED [None]
